FAERS Safety Report 17376594 (Version 2)
Quarter: 2020Q1

REPORT INFORMATION
  Report Type: Spontaneous
  Country: ES (occurrence: ES)
  Receive Date: 20200206
  Receipt Date: 20200318
  Transmission Date: 20200409
  Serious: Yes (Other)
  Sender: FDA-Public Use
  Company Number: NVSC2019ES027587

PATIENT
  Age: 84 Year
  Sex: Female

DRUGS (2)
  1. VILDAGLIPTIN [Suspect]
     Active Substance: VILDAGLIPTIN
     Indication: DIABETES MELLITUS
     Dosage: UNK
     Route: 048
  2. PREDNISONE. [Suspect]
     Active Substance: PREDNISONE
     Indication: PEMPHIGOID
     Dosage: 30 MG, QD
     Route: 065

REACTIONS (3)
  - Pemphigoid [Recovering/Resolving]
  - Eosinophilia [Unknown]
  - Therapeutic response decreased [Unknown]
